FAERS Safety Report 7250066-9 (Version None)
Quarter: 2011Q1

REPORT INFORMATION
  Report Type: 
  Country: None (occurrence: None)
  Receive Date: 20110128
  Receipt Date: 20110106
  Transmission Date: 20110831
  Serious: Yes (Death, Hospitalization)
  Sender: FDA-Public Use
  Company Number: BR-BAYER-2010-002560

PATIENT
  Sex: Male

DRUGS (2)
  1. SORAFENIB (RAF KINASE INHIBITOR) [Suspect]
     Indication: HEPATIC NEOPLASM MALIGNANT
     Dosage: 200 MG, QD
     Route: 048
     Dates: start: 20100901, end: 20100901
  2. SORAFENIB (RAF KINASE INHIBITOR) [Suspect]
     Dosage: 200 MG, QOD
     Route: 048

REACTIONS (5)
  - ARRHYTHMIA [None]
  - CANCER PAIN [None]
  - RESPIRATORY DISORDER [None]
  - HEPATIC NEOPLASM MALIGNANT [None]
  - CHEST PAIN [None]
